FAERS Safety Report 8856498 (Version 1)
Quarter: 2012Q4

REPORT INFORMATION
  Report Type: Spontaneous
  Country: US (occurrence: None)
  Receive Date: 20121024
  Receipt Date: 20121024
  Transmission Date: 20130627
  Serious: No
  Sender: FDA-Public Use
  Company Number: None

PATIENT
  Age: 86 Year
  Sex: Female
  Weight: 72.58 kg

DRUGS (1)
  1. PREDNISOLONE [Suspect]

REACTIONS (4)
  - Sinusitis [None]
  - Unevaluable event [None]
  - Cough [None]
  - Pyrexia [None]
